FAERS Safety Report 25752097 (Version 1)
Quarter: 2025Q3

REPORT INFORMATION
  Report Type: Spontaneous
  Country: US (occurrence: US)
  Receive Date: 20250902
  Receipt Date: 20250902
  Transmission Date: 20251020
  Serious: No
  Sender: GILEAD
  Company Number: US-GILEAD-2025-0726276

PATIENT
  Age: 76 Year
  Sex: Male

DRUGS (14)
  1. LIVDELZI [Suspect]
     Active Substance: SELADELPAR LYSINE
     Indication: Primary biliary cholangitis
     Route: 065
     Dates: start: 20250616
  2. TESTOSTERONE [Concomitant]
     Active Substance: TESTOSTERONE
  3. PROSCAR [Concomitant]
     Active Substance: FINASTERIDE
  4. FLOMAX [Concomitant]
     Active Substance: TAMSULOSIN HYDROCHLORIDE
  5. REPATHA [Concomitant]
     Active Substance: EVOLOCUMAB
  6. HYZAAR [Concomitant]
     Active Substance: HYDROCHLOROTHIAZIDE\LOSARTAN POTASSIUM
  7. PANTOPRAZOLE [Concomitant]
     Active Substance: PANTOPRAZOLE
  8. PLAVIX [Concomitant]
     Active Substance: CLOPIDOGREL BISULFATE
  9. URSODIOL [Concomitant]
     Active Substance: URSODIOL
  10. FLONASE ALLERGY RELIEF [Concomitant]
     Active Substance: FLUTICASONE PROPIONATE
  11. MULTI VITAMIN [ARGININE HYDROCHLORIDE;ASCORBIC ACID;CALCIUM;CALCIUM PA [Concomitant]
  12. CHOLECALCIFEROL [Concomitant]
     Active Substance: CHOLECALCIFEROL
  13. IRON [Concomitant]
     Active Substance: IRON
  14. FISH OIL [Concomitant]
     Active Substance: FISH OIL

REACTIONS (1)
  - Rash pruritic [Recovering/Resolving]

NARRATIVE: CASE EVENT DATE: 20250726
